FAERS Safety Report 7974709-7 (Version None)
Quarter: 2011Q4

REPORT INFORMATION
  Report Type: 
  Country: None (occurrence: None)
  Receive Date: 20111213
  Receipt Date: 20111205
  Transmission Date: 20120403
  Serious: Yes (Hospitalization)
  Sender: FDA-Public Use
  Company Number: US-ELI_LILLY_AND_COMPANY-US201112002130

PATIENT
  Sex: Female

DRUGS (5)
  1. SOMA [Concomitant]
  2. LYRICA [Concomitant]
  3. HYDROCODONE [Concomitant]
     Dosage: 7.5 MG, UNK
  4. FORTEO [Suspect]
     Indication: OSTEOPOROSIS
     Dosage: 20 UG, QD
  5. AMBIEN [Concomitant]

REACTIONS (8)
  - DRUG DOSE OMISSION [None]
  - MALAISE [None]
  - NAUSEA [None]
  - DYSPEPSIA [None]
  - HYPERMETROPIA [None]
  - DYSGEUSIA [None]
  - GASTROINTESTINAL DISORDER [None]
  - VISUAL IMPAIRMENT [None]
